FAERS Safety Report 25762004 (Version 2)
Quarter: 2025Q3

REPORT INFORMATION
  Report Type: Spontaneous
  Country: US (occurrence: US)
  Receive Date: 20250904
  Receipt Date: 20250921
  Transmission Date: 20251020
  Serious: Yes (Life-Threatening, Hospitalization)
  Sender: TEVA
  Company Number: US-TEVA-VS-3366620

PATIENT
  Age: 50 Year
  Sex: Female

DRUGS (7)
  1. VANCOMYCIN [Suspect]
     Active Substance: VANCOMYCIN
     Indication: Evidence based treatment
     Route: 065
  2. CARBOPLATIN [Concomitant]
     Active Substance: CARBOPLATIN
     Indication: Triple negative breast cancer
     Dosage: RECEIVED 4 CYCLES
     Route: 065
  3. CYCLOPHOSPHAMIDE [Concomitant]
     Active Substance: CYCLOPHOSPHAMIDE
     Indication: Triple negative breast cancer
     Dosage: RECEIVED 4 CYCLES ALONG WITH PEMBROLIZUMAB AND DOXORUBICIN
     Route: 065
  4. PACLITAXEL [Concomitant]
     Active Substance: PACLITAXEL
     Indication: Triple negative breast cancer
     Dosage: RECEIVED 4 CYCLES
     Route: 065
  5. DOXORUBICIN [Concomitant]
     Active Substance: DOXORUBICIN
     Indication: Triple negative breast cancer
     Dosage: RECEIVED 4 CYCLES ALONG WITH PEMBROLIZUMAB AND CYCLOPHOSPHAMIDE
     Route: 065
  6. PEMBROLIZUMAB [Suspect]
     Active Substance: PEMBROLIZUMAB
     Indication: Triple negative breast cancer
     Dosage: RECEIVED 4 CYCLES ALONG WITH PACLITAXEL AND CARBOPLATIN; AND THEN 4 CYCLES WITH CYCLOPHOSPHAMIDE ...
     Route: 065
  7. ZOSYN [Concomitant]
     Active Substance: PIPERACILLIN SODIUM\TAZOBACTAM SODIUM
     Indication: Evidence based treatment
     Route: 065

REACTIONS (5)
  - Renal tubular necrosis [Recovering/Resolving]
  - Thyroiditis [Recovering/Resolving]
  - Acute kidney injury [Recovering/Resolving]
  - Thyrotoxic crisis [Recovering/Resolving]
  - Hypothyroidism [Recovering/Resolving]
